FAERS Safety Report 11416169 (Version 1)
Quarter: 2015Q3

REPORT INFORMATION
  Report Type: Spontaneous
  Country: US (occurrence: US)
  Receive Date: 20150825
  Receipt Date: 20150825
  Transmission Date: 20151125
  Serious: No
  Sender: FDA-Public Use
  Company Number: US-TEVA-570590USA

PATIENT
  Age: 76 Year
  Sex: Female
  Weight: 71.65 kg

DRUGS (3)
  1. FEXOFENADINE [Suspect]
     Active Substance: FEXOFENADINE\FEXOFENADINE HYDROCHLORIDE
     Indication: NASAL CONGESTION
     Dosage: 180 MILLIGRAM DAILY;
     Route: 048
     Dates: start: 20150607, end: 20150608
  2. METOPROLOL TARTRATE. [Concomitant]
     Active Substance: METOPROLOL TARTRATE
  3. SYSTANE ULTRA [Concomitant]
     Active Substance: POLYETHYLENE GLYCOL 400\PROPYLENE GLYCOL
     Dates: start: 20150603, end: 20150609

REACTIONS (2)
  - Eye swelling [Not Recovered/Not Resolved]
  - Intentional product use issue [Recovered/Resolved]

NARRATIVE: CASE EVENT DATE: 20150607
